FAERS Safety Report 20104721 (Version 1)
Quarter: 2021Q4

REPORT INFORMATION
  Report Type: Spontaneous
  Country: US (occurrence: US)
  Receive Date: 20211123
  Receipt Date: 20211123
  Transmission Date: 20220304
  Serious: No
  Sender: FDA-Public Use
  Company Number: US-AMGEN-USASP2021181410

PATIENT
  Age: 7 Year

DRUGS (2)
  1. BEVACIZUMAB [Suspect]
     Active Substance: BEVACIZUMAB
     Indication: Optic glioma
     Dosage: UNK
     Route: 065
  2. VINBLASTINE [Concomitant]
     Active Substance: VINBLASTINE

REACTIONS (1)
  - Off label use [Unknown]
